FAERS Safety Report 9048822 (Version 1)
Quarter: 2013Q1

REPORT INFORMATION
  Report Type: Spontaneous
  Country: US (occurrence: US)
  Receive Date: 20130204
  Receipt Date: 20130204
  Transmission Date: 20140127
  Serious: No
  Sender: FDA-Public Use
  Company Number: US-AMGEN-USASP2013000775

PATIENT
  Age: 74 Year
  Sex: Male

DRUGS (1)
  1. ENBREL [Suspect]
     Indication: RHEUMATOID ARTHRITIS
     Dosage: 50 MG, QWK
     Dates: start: 20030103

REACTIONS (4)
  - Device failure [Recovered/Resolved]
  - Dental discomfort [Recovered/Resolved]
  - Tooth fracture [Recovered/Resolved]
  - Nasopharyngitis [Not Recovered/Not Resolved]
